FAERS Safety Report 13073681 (Version 1)
Quarter: 2016Q4

REPORT INFORMATION
  Report Type: Spontaneous
  Country: FR (occurrence: FR)
  Receive Date: 20161229
  Receipt Date: 20161229
  Transmission Date: 20170207
  Serious: Yes (Hospitalization)
  Sender: FDA-Public Use
  Company Number: FR-SA-2016SA236508

PATIENT
  Age: 50 Year
  Sex: Male

DRUGS (6)
  1. ZOLPIDEM [Suspect]
     Active Substance: ZOLPIDEM\ZOLPIDEM TARTRATE
     Indication: OVERDOSE
     Route: 048
     Dates: start: 20161025, end: 20161025
  2. DIAZEPAM. [Suspect]
     Active Substance: DIAZEPAM
     Indication: OVERDOSE
     Route: 048
     Dates: start: 20161025, end: 20161025
  3. LARGACTIL [Suspect]
     Active Substance: CHLORPROMAZINE
     Indication: OVERDOSE
     Route: 048
     Dates: start: 20161025, end: 20161025
  4. DEPAKOTE [Suspect]
     Active Substance: DIVALPROEX SODIUM
     Indication: OVERDOSE
     Route: 048
     Dates: start: 20161025, end: 20161025
  5. TERCIAN [Suspect]
     Active Substance: CYAMEMAZINE
     Indication: OVERDOSE
     Route: 048
     Dates: start: 20161025, end: 20161025
  6. SERESTA [Suspect]
     Active Substance: OXAZEPAM
     Indication: OVERDOSE
     Route: 048
     Dates: start: 20161025, end: 20161025

REACTIONS (3)
  - Pneumonia aspiration [Recovering/Resolving]
  - Coma [Recovered/Resolved]
  - Poisoning deliberate [Recovered/Resolved]

NARRATIVE: CASE EVENT DATE: 20161025
